FAERS Safety Report 20967479 (Version 3)
Quarter: 2022Q3

REPORT INFORMATION
  Report Type: Spontaneous
  Country: JP (occurrence: JP)
  Receive Date: 20220616
  Receipt Date: 20220711
  Transmission Date: 20221026
  Serious: Yes (Other)
  Sender: FDA-Public Use
  Company Number: JP-PFIZER INC-202200744769

PATIENT
  Age: 91 Year
  Sex: Female
  Weight: 37.5 kg

DRUGS (1)
  1. ENBREL [Suspect]
     Active Substance: ETANERCEPT
     Dosage: 0.5 ML, 1 TIME FOR EVERY 2 WEEKS
     Route: 058

REACTIONS (6)
  - Needle issue [Unknown]
  - Injury associated with device [Unknown]
  - Injection site haemorrhage [Recovering/Resolving]
  - Subcutaneous haematoma [Recovering/Resolving]
  - Injection site pain [Recovering/Resolving]
  - Off label use [Unknown]

NARRATIVE: CASE EVENT DATE: 20220523
